FAERS Safety Report 8553875-9 (Version None)
Quarter: 2012Q3

REPORT INFORMATION
  Report Type: 
  Country: None (occurrence: None)
  Receive Date: 20120731
  Receipt Date: 20120719
  Transmission Date: 20120928
  Serious: Yes (Life-Threatening, Hospitalization, Disabling, Other)
  Sender: FDA-Public Use
  Company Number: IL-INCYTE CORPORATION-2012IN000826

PATIENT
  Sex: Male
  Weight: 55 kg

DRUGS (5)
  1. INC424 [Suspect]
     Indication: SPLENOMEGALY
     Dosage: 10 MG, BID
     Route: 048
     Dates: end: 20120712
  2. INC424 [Suspect]
     Indication: MYELOFIBROSIS
     Dosage: 15 MG, BID
     Route: 048
     Dates: start: 20120504
  3. ALLOPURINOL [Concomitant]
  4. OMEPRADEX [Concomitant]
     Dosage: UNK
     Dates: start: 20120502, end: 20120702
  5. ZYLOL [Concomitant]
     Dosage: UNK
     Dates: end: 20120505

REACTIONS (2)
  - SPONTANEOUS HAEMATOMA [None]
  - HAEMORRHAGE SUBCUTANEOUS [None]
